FAERS Safety Report 13021474 (Version 2)
Quarter: 2017Q1

REPORT INFORMATION
  Report Type: Spontaneous
  Country: ES (occurrence: ES)
  Receive Date: 20161213
  Receipt Date: 20170112
  Transmission Date: 20170428
  Serious: Yes (Other)
  Sender: FDA-Public Use
  Company Number: ES-SUN PHARMACEUTICAL INDUSTRIES LTD-2016RR-126765

PATIENT
  Age: 57 Year
  Sex: Female

DRUGS (9)
  1. OXALIPLATIN. [Suspect]
     Active Substance: OXALIPLATIN
     Indication: COLORECTAL CANCER METASTATIC
     Dosage: ON DAY 01: 21 DAY CYCLE
     Route: 065
     Dates: start: 201005
  2. CAPECITABINE. [Concomitant]
     Active Substance: CAPECITABINE
     Indication: COLORECTAL CANCER METASTATIC
     Dosage: EVERY 12 HOURS: ON DAY 01 TO 14: 21 DAY CYCLE
     Route: 065
     Dates: start: 201005
  3. AFLIBERCEPT [Suspect]
     Active Substance: AFLIBERCEPT
     Indication: METASTASES TO LIVER
     Dosage: 4 MG/KG, ADMINISTERED FROM THE THIRD CYCLE
     Route: 065
  4. BEVACIZUMAB [Concomitant]
     Active Substance: BEVACIZUMAB
     Indication: COLORECTAL CANCER METASTATIC
     Dosage: ON DAY 01: 21 DAY CYCLE
     Route: 065
     Dates: start: 201005
  5. CALCIUM FOLINAT [Suspect]
     Active Substance: LEUCOVORIN CALCIUM
     Indication: METASTASES TO LIVER
     Dosage: 200 MG/M2, ON DAY 01: 14 DAY CYCLE
     Route: 065
     Dates: start: 201206
  6. 5-FLUOROURACIL [Suspect]
     Active Substance: FLUOROURACIL
     Indication: METASTASES TO LIVER
     Dosage: 400 MG/M2, ON DAY 01: 14 DAY CYCLE
     Route: 040
     Dates: start: 201206
  7. IRINOTECAN [Suspect]
     Active Substance: IRINOTECAN
     Indication: METASTASES TO LIVER
     Dosage: 180 MG/M2, ON DAY 01: 14 DAY CYCLE
     Route: 065
     Dates: start: 201206
  8. CETUXIMAB. [Concomitant]
     Active Substance: CETUXIMAB
     Indication: COLORECTAL CANCER METASTATIC
     Dosage: UNK
     Route: 065
     Dates: end: 201308
  9. 5-FLUOROURACIL [Suspect]
     Active Substance: FLUOROURACIL
     Dosage: 2400 MG/M2, ON DAY 01: 14 DAY CYCLE
     Route: 042

REACTIONS (10)
  - Respiratory tract infection [Unknown]
  - Back pain [Unknown]
  - Disease progression [Unknown]
  - Neurotoxicity [Unknown]
  - Neutropenia [Unknown]
  - Mucosal inflammation [Unknown]
  - Jaundice [Recovering/Resolving]
  - Pharyngotonsillitis [Recovering/Resolving]
  - Hypertension [Recovering/Resolving]
  - Infusion site reaction [Unknown]
